FAERS Safety Report 6397614-9 (Version None)
Quarter: 2009Q4

REPORT INFORMATION
  Report Type: 
  Country: None (occurrence: None)
  Receive Date: 20091012
  Receipt Date: 20091007
  Transmission Date: 20100525
  Serious: Yes (Death, Hospitalization, Other)
  Sender: FDA-Public Use
  Company Number: PHHY2009BR43183

PATIENT
  Sex: Female

DRUGS (3)
  1. TEGRETOL-XR [Suspect]
     Indication: CONVULSION
     Dosage: 200 MG, Q12H
     Route: 048
     Dates: start: 19840101, end: 20090707
  2. GARDENAL [Concomitant]
     Indication: CONVULSION
     Dosage: 100 MG, QHS
     Route: 048
     Dates: start: 19840101, end: 20090707
  3. MAREVAN [Concomitant]
     Indication: THROMBOSIS
     Dosage: 5 MG, QD
     Route: 048
     Dates: start: 20050101, end: 20090707

REACTIONS (9)
  - ASTHMA [None]
  - BONE OPERATION [None]
  - CEREBROVASCULAR ACCIDENT [None]
  - COMA [None]
  - FALL [None]
  - FEMUR FRACTURE [None]
  - GAIT DISTURBANCE [None]
  - PNEUMONIA BACTERIAL [None]
  - WHEELCHAIR USER [None]
